FAERS Safety Report 19776048 (Version 2)
Quarter: 2021Q4

REPORT INFORMATION
  Report Type: Report from Study
  Country: US (occurrence: US)
  Receive Date: 20210902
  Receipt Date: 20211108
  Transmission Date: 20220303
  Serious: Yes (Other)
  Sender: FDA-Public Use
  Company Number: US-BIOVITRUM-2021US3413

PATIENT
  Age: 40 Year
  Sex: Female

DRUGS (2)
  1. KINERET [Suspect]
     Active Substance: ANAKINRA
     Indication: Pericarditis constrictive
     Route: 058
     Dates: start: 20200414
  2. KINERET [Suspect]
     Active Substance: ANAKINRA
     Indication: Gout

REACTIONS (9)
  - Haemorrhage [Unknown]
  - Ventricular extrasystoles [Unknown]
  - Malaise [Unknown]
  - Abscess [Unknown]
  - Radius fracture [Unknown]
  - White blood cell count decreased [Recovered/Resolved]
  - Injection site reaction [Unknown]
  - Product physical issue [Unknown]
  - Off label use [Not Recovered/Not Resolved]

NARRATIVE: CASE EVENT DATE: 20200414
